FAERS Safety Report 10501754 (Version 1)
Quarter: 2014Q4

REPORT INFORMATION
  Report Type: Spontaneous
  Country: US (occurrence: US)
  Receive Date: 20141007
  Receipt Date: 20141007
  Transmission Date: 20150528
  Serious: Yes (Hospitalization, Other)
  Sender: FDA-Public Use
  Company Number: US-GLAXOSMITHKLINE-A1090993A

PATIENT
  Sex: Male

DRUGS (4)
  1. ADVAIR HFA [Suspect]
     Active Substance: FLUTICASONE PROPIONATE\SALMETEROL XINAFOATE
     Indication: CHRONIC OBSTRUCTIVE PULMONARY DISEASE
     Dosage: 1 DF, BID
     Route: 055
     Dates: start: 200001, end: 201407
  2. COMBIVENT [Concomitant]
     Active Substance: ALBUTEROL SULFATE\IPRATROPIUM BROMIDE
  3. FLOVENT HFA [Suspect]
     Active Substance: FLUTICASONE PROPIONATE
     Indication: CHRONIC OBSTRUCTIVE PULMONARY DISEASE
     Dosage: INH 110MCG
     Route: 055
     Dates: start: 201407, end: 20140919
  4. FLOVENT [Suspect]
     Active Substance: FLUTICASONE PROPIONATE
     Indication: CHRONIC OBSTRUCTIVE PULMONARY DISEASE
     Dosage: ROTA 250MCG
     Route: 055
     Dates: start: 20140919

REACTIONS (13)
  - Kidney infection [Unknown]
  - Pneumonia [Unknown]
  - Nervousness [Unknown]
  - Body height decreased [Unknown]
  - Dyspnoea exertional [Unknown]
  - Drug ineffective [Unknown]
  - Dyspnoea [Unknown]
  - Hernia [Unknown]
  - Drug intolerance [Unknown]
  - Increased bronchial secretion [Unknown]
  - Prostatic disorder [Recovered/Resolved]
  - Renal neoplasm [Unknown]
  - Productive cough [Unknown]

NARRATIVE: CASE EVENT DATE: 2009
